FAERS Safety Report 23846083 (Version 3)
Quarter: 2024Q3

REPORT INFORMATION
  Report Type: Other
  Country: US (occurrence: US)
  Receive Date: 20240512
  Receipt Date: 20240815
  Transmission Date: 20241017
  Serious: No
  Sender: TRAVERE THERAPEUTICS
  Company Number: US-TRAVERE-2024TVT00405

PATIENT
  Age: 24 Year
  Sex: Male

DRUGS (8)
  1. FILSPARI [Suspect]
     Active Substance: SPARSENTAN
     Indication: IgA nephropathy
     Route: 048
     Dates: start: 20240422
  2. FILSPARI [Suspect]
     Active Substance: SPARSENTAN
     Dosage: RX NUMBER: 15514175
     Route: 048
     Dates: start: 20240505
  3. TESTOSTERONE [Concomitant]
     Active Substance: TESTOSTERONE
  4. ALBUTEROL [Concomitant]
     Active Substance: ALBUTEROL
  5. CARVEDILOL [Concomitant]
     Active Substance: CARVEDILOL
  6. PEPCID [Concomitant]
     Active Substance: FAMOTIDINE
  7. CLARITIN [Concomitant]
     Active Substance: LORATADINE
  8. PROPRANOLOL [Concomitant]
     Active Substance: PROPRANOLOL HYDROCHLORIDE

REACTIONS (2)
  - Asthenopia [Unknown]
  - Fatigue [Unknown]
